FAERS Safety Report 7178891-3 (Version None)
Quarter: 2010Q4

REPORT INFORMATION
  Report Type: 
  Country: None (occurrence: None)
  Receive Date: 20101217
  Receipt Date: 20101217
  Transmission Date: 20110411
  Serious: Yes (Other)
  Sender: FDA-Public Use
  Company Number: None

PATIENT
  Age: 15 Year
  Sex: Male
  Weight: 96.9 kg

DRUGS (1)
  1. SEPTRA DS [Suspect]
     Indication: ABSCESS
     Dosage: 160/800MG TABLET Q12H ORAL (047)
     Route: 048
     Dates: start: 20100920

REACTIONS (8)
  - ABDOMINAL PAIN [None]
  - DECREASED APPETITE [None]
  - DIZZINESS [None]
  - DRUG EFFECT DECREASED [None]
  - LEUKOPENIA [None]
  - NASAL CONGESTION [None]
  - PAIN [None]
  - PYREXIA [None]
